FAERS Safety Report 24702511 (Version 1)
Quarter: 2024Q4

REPORT INFORMATION
  Report Type: Spontaneous
  Country: US (occurrence: None)
  Receive Date: 20241205
  Receipt Date: 20241205
  Transmission Date: 20250115
  Serious: No
  Sender: Public
  Company Number: None

PATIENT
  Age: 50 Year
  Sex: Male
  Weight: 102.15 kg

DRUGS (1)
  1. GLATIRAMER [Suspect]
     Active Substance: GLATIRAMER
     Indication: Multiple sclerosis
     Dosage: 40 MG/ML THREE TIMES A WEEK SUBCUTANEOUS?
     Route: 058
     Dates: start: 20110101

REACTIONS (2)
  - Muscle spasms [None]
  - Condition aggravated [None]

NARRATIVE: CASE EVENT DATE: 20240909
